FAERS Safety Report 9580361 (Version 1)
Quarter: 2013Q3

REPORT INFORMATION
  Report Type: Spontaneous
  Country: US (occurrence: None)
  Receive Date: 20130916
  Receipt Date: 20130916
  Transmission Date: 20140515
  Serious: Yes (Other)
  Sender: FDA-Public Use
  Company Number: JPI-P-033140

PATIENT
  Age: 42 Year
  Sex: Female
  Weight: 53.07 kg

DRUGS (5)
  1. XYREM (500 MILLIGRAM/MILLILITERS, SOLUTION) (SODIUM OXYBATE) [Suspect]
     Indication: CATAPLEXY
     Route: 048
     Dates: start: 201006
  2. PROPRANOLOL HYDROCHLORIDE (SUSTAINED-RELEASE TABLET) [Concomitant]
  3. AMPHETAMINE, DEXTROAMPHETAMINE MEXED SALTS [Concomitant]
  4. DEXTROAMPHETAMINE [Concomitant]
  5. HYDROCODONE/IBUPROFEN [Concomitant]

REACTIONS (3)
  - Accidental overdose [None]
  - Respiratory depression [None]
  - Body temperature decreased [None]
